FAERS Safety Report 9324987 (Version 1)
Quarter: 2013Q2

REPORT INFORMATION
  Report Type: Spontaneous
  Country: FR (occurrence: None)
  Receive Date: 20130530
  Receipt Date: 20130530
  Transmission Date: 20140414
  Serious: Yes (Congenital Anomaly)
  Sender: FDA-Public Use
  Company Number: 2013CT000037

PATIENT
  Sex: 0

DRUGS (1)
  1. MIFEPRISTONE [Suspect]

REACTIONS (3)
  - Maternal drugs affecting foetus [None]
  - Stridor [None]
  - Horner^s syndrome [None]
